FAERS Safety Report 9032089 (Version 1)
Quarter: 2013Q1

REPORT INFORMATION
  Report Type: Spontaneous
  Country: ES (occurrence: ES)
  Receive Date: 20130122
  Receipt Date: 20130122
  Transmission Date: 20140127
  Serious: Yes (Hospitalization, Other)
  Sender: FDA-Public Use
  Company Number: PHHY2013ES003667

PATIENT
  Age: 50 Year
  Sex: Male
  Weight: 87 kg

DRUGS (2)
  1. EVEROLIMUS [Suspect]
  2. ZELBORAF [Suspect]
     Indication: MALIGNANT MELANOMA
     Dates: start: 20120119, end: 20120119

REACTIONS (2)
  - Dyspnoea [Not Recovered/Not Resolved]
  - Toxicity to various agents [Unknown]
